FAERS Safety Report 14584413 (Version 1)
Quarter: 2018Q1

REPORT INFORMATION
  Report Type: Spontaneous
  Country: TW (occurrence: TW)
  Receive Date: 20180301
  Receipt Date: 20180301
  Transmission Date: 20180509
  Serious: Yes (Death, Hospitalization)
  Sender: FDA-Public Use
  Company Number: TW-IMPAX LABORATORIES, INC-2018-IPXL-00559

PATIENT
  Age: 65 Year
  Sex: Male

DRUGS (5)
  1. HYDROCORTISONE. [Suspect]
     Active Substance: HYDROCORTISONE
     Indication: HISTIOCYTOSIS HAEMATOPHAGIC
     Dosage: 200 MG, DAILY
     Route: 042
  2. HYDROCORTISONE. [Suspect]
     Active Substance: HYDROCORTISONE
     Indication: HISTIOCYTOSIS HAEMATOPHAGIC
  3. PREDNISOLONE. [Suspect]
     Active Substance: PREDNISOLONE
     Indication: PERITONITIS
     Dosage: 10 MG, DAILY
     Route: 048
  4. TIGECYCLINE. [Suspect]
     Active Substance: TIGECYCLINE
     Indication: ANTIBIOTIC THERAPY
     Dosage: 50 MG, PER 12 HRS INJECTION
     Route: 042
  5. FLUMARIN [Suspect]
     Active Substance: FLOMOXEF SODIUM
     Indication: PERITONITIS
     Dosage: 1.0 G, EVERY 8HR
     Route: 042

REACTIONS (7)
  - Abdominal wall haematoma [Unknown]
  - Necrotising fasciitis [Fatal]
  - Bone marrow failure [Unknown]
  - Cytomegalovirus viraemia [Fatal]
  - Abdominal wall abscess [Unknown]
  - Bacterial test positive [Unknown]
  - Septic shock [Fatal]
